FAERS Safety Report 8148692 (Version 3)
Quarter: 2013Q4

REPORT INFORMATION
  Report Type: Spontaneous
  Country: US (occurrence: US)
  Receive Date: 20110922
  Receipt Date: 20131206
  Transmission Date: 20140711
  Serious: No
  Sender: FDA-Public Use
  Company Number: US-ASTRAZENECA-2011SE06154

PATIENT
  Age: 55 Year
  Sex: Female
  Weight: 72.1 kg

DRUGS (5)
  1. SEROQUEL XR [Suspect]
     Indication: DEPRESSION
     Route: 048
     Dates: start: 201101
  2. SEROQUEL XR [Suspect]
     Indication: SLEEP DISORDER
     Route: 048
     Dates: start: 201101
  3. XANAX [Concomitant]
     Indication: ANXIETY
     Dosage: 1 MG PRN
  4. CELEXA [Concomitant]
     Indication: DEPRESSION
     Dosage: DAILY
  5. TEMAZEPAM [Concomitant]
     Indication: SLEEP DISORDER
     Dosage: 30 MG AS REQUIRED

REACTIONS (12)
  - Hypertension [Unknown]
  - Insomnia [Unknown]
  - Throat irritation [Unknown]
  - Upper respiratory tract congestion [Unknown]
  - Malaise [Unknown]
  - Fatigue [Unknown]
  - Constipation [Unknown]
  - Dyskinesia [Unknown]
  - Weight increased [Unknown]
  - Dizziness [Unknown]
  - Drug dose omission [Unknown]
  - Intentional drug misuse [Unknown]
